FAERS Safety Report 16440479 (Version 3)
Quarter: 2023Q1

REPORT INFORMATION
  Report Type: Spontaneous
  Country: FR (occurrence: FR)
  Receive Date: 20190617
  Receipt Date: 20230327
  Transmission Date: 20230417
  Serious: Yes (Death, Life-Threatening, Other)
  Sender: FDA-Public Use
  Company Number: PHHY2019FR137082

PATIENT
  Age: 33 Year
  Sex: Male

DRUGS (5)
  1. PREDNISONE [Suspect]
     Active Substance: PREDNISONE
     Indication: Cutaneous T-cell lymphoma
     Dosage: UNK, CYCLIC
     Route: 065
     Dates: start: 200206
  2. CYCLOPHOSPHAMIDE [Suspect]
     Active Substance: CYCLOPHOSPHAMIDE
     Indication: Cutaneous T-cell lymphoma
     Dosage: UNK, CYCLIC
     Route: 065
     Dates: start: 200206
  3. VINCRISTINE SULFATE [Suspect]
     Active Substance: VINCRISTINE SULFATE
     Indication: Cutaneous T-cell lymphoma
     Dosage: UNK UNK, CYCLIC (REDUCING THE DOSES OF OTHER MOLECULES BY 30 PERCENT)
     Route: 065
     Dates: start: 200206
  4. DOXORUBICIN HYDROCHLORIDE [Suspect]
     Active Substance: DOXORUBICIN HYDROCHLORIDE
     Indication: Cutaneous T-cell lymphoma
     Dosage: UNK UNK, CYCLIC
     Route: 065
     Dates: start: 200206
  5. DOXORUBICIN HYDROCHLORIDE [Suspect]
     Active Substance: DOXORUBICIN HYDROCHLORIDE
     Dosage: 25 MG/M2, CYCLIC (DOSE REDUCTION OF ADRIAMYCIN)
     Route: 065
     Dates: start: 200402

REACTIONS (5)
  - Cardiotoxicity [Fatal]
  - Paraesthesia [Fatal]
  - Pneumonia [Fatal]
  - Staphylococcal sepsis [Fatal]
  - Myelosuppression [Fatal]
